FAERS Safety Report 10566637 (Version 1)
Quarter: 2014Q4

REPORT INFORMATION
  Report Type: Spontaneous
  Country: US (occurrence: US)
  Receive Date: 20141105
  Receipt Date: 20141105
  Transmission Date: 20150529
  Serious: No
  Sender: FDA-Public Use
  Company Number: US-ELI_LILLY_AND_COMPANY-US201410010354

PATIENT
  Age: 68 Year
  Sex: Male

DRUGS (7)
  1. ALLOPURINOL. [Concomitant]
     Active Substance: ALLOPURINOL
     Dosage: 300 MG, UNK
  2. LEVODOPA [Concomitant]
     Active Substance: LEVODOPA
     Dosage: 100 MG, UNK
  3. KLONOPIN [Concomitant]
     Active Substance: CLONAZEPAM
     Dosage: 5 MG, UNK
  4. TADALAFIL [Suspect]
     Active Substance: TADALAFIL
     Indication: BENIGN PROSTATIC HYPERPLASIA
     Dosage: 5 MG, BID
  5. FLOMAX [Concomitant]
     Active Substance: TAMSULOSIN HYDROCHLORIDE
  6. CARBIDOPA. [Concomitant]
     Active Substance: CARBIDOPA
  7. CITALOPRAM [Concomitant]
     Active Substance: CITALOPRAM HYDROBROMIDE
     Dosage: 10 MG, UNK

REACTIONS (3)
  - Pneumonia [Unknown]
  - Fall [Not Recovered/Not Resolved]
  - Drug effect decreased [Unknown]
